FAERS Safety Report 8999364 (Version 1)
Quarter: 2013Q1

REPORT INFORMATION
  Report Type: Spontaneous
  Country: US (occurrence: US)
  Receive Date: 20130103
  Receipt Date: 20130103
  Transmission Date: 20140127
  Serious: No
  Sender: FDA-Public Use
  Company Number: US-ASTRAZENECA-2012SE94991

PATIENT
  Age: 61 Year
  Sex: Female
  Weight: 70.3 kg

DRUGS (2)
  1. NEXIUM [Suspect]
     Indication: GASTROOESOPHAGEAL REFLUX DISEASE
     Route: 048
     Dates: start: 2000
  2. CELONETAFOL CREAM [Concomitant]
     Indication: LICHEN SCLEROSUS

REACTIONS (4)
  - Lichen sclerosus [Recovering/Resolving]
  - pH urine decreased [Unknown]
  - Therapeutic response unexpected [Unknown]
  - Intentional drug misuse [Unknown]
